FAERS Safety Report 8071278-0 (Version None)
Quarter: 2012Q1

REPORT INFORMATION
  Report Type: 
  Country: None (occurrence: None)
  Receive Date: 20120125
  Receipt Date: 20120117
  Transmission Date: 20120608
  Serious: Yes (Life-Threatening, Other)
  Sender: FDA-Public Use
  Company Number: US-JNJFOC-20111107759

PATIENT
  Sex: Male
  Weight: 90.72 kg

DRUGS (5)
  1. REMICADE [Suspect]
     Dosage: 3 DOSES
     Route: 042
     Dates: start: 20110601, end: 20110701
  2. REMICADE [Suspect]
     Route: 042
     Dates: start: 20110601, end: 20111019
  3. ASACOL [Concomitant]
     Indication: COLITIS ULCERATIVE
     Dosage: 3,6 G
     Route: 065
     Dates: start: 20080101
  4. REMICADE [Suspect]
     Indication: COLITIS ULCERATIVE
     Route: 042
     Dates: start: 20110907, end: 20111019
  5. REMICADE [Suspect]
     Route: 042
     Dates: start: 20110527

REACTIONS (3)
  - DRUG INEFFECTIVE [None]
  - INFUSION RELATED REACTION [None]
  - HYPERSENSITIVITY [None]
